FAERS Safety Report 21403536 (Version 4)
Quarter: 2025Q1

REPORT INFORMATION
  Report Type: Report from Study
  Country: US (occurrence: US)
  Receive Date: 20221003
  Receipt Date: 20250227
  Transmission Date: 20250409
  Serious: Yes (Other)
  Sender: ABBVIE
  Company Number: US-ABBVIE-22K-163-4448257-00

PATIENT
  Sex: Female

DRUGS (3)
  1. IMBRUVICA [Suspect]
     Active Substance: IBRUTINIB
     Indication: Chronic lymphocytic leukaemia
     Route: 048
     Dates: start: 20200307
  2. NIFEDIPINE [Concomitant]
     Active Substance: NIFEDIPINE
     Indication: Product used for unknown indication
  3. IRON [Concomitant]
     Active Substance: IRON
     Indication: Product used for unknown indication

REACTIONS (13)
  - Blindness transient [Unknown]
  - Blood iron decreased [Unknown]
  - Skin atrophy [Unknown]
  - Weight increased [Unknown]
  - Skin exfoliation [Unknown]
  - Swelling [Unknown]
  - Peripheral swelling [Recovering/Resolving]
  - Weight loss poor [Unknown]
  - Gastroenteritis viral [Unknown]
  - Hypersomnia [Unknown]
  - Vomiting [Unknown]
  - Drug hypersensitivity [Unknown]
  - White blood cell count increased [Unknown]
